FAERS Safety Report 11849858 (Version 1)
Quarter: 2015Q4

REPORT INFORMATION
  Report Type: Report from Study
  Country: US (occurrence: US)
  Receive Date: 20151218
  Receipt Date: 20151218
  Transmission Date: 20160305
  Serious: Yes (Other)
  Sender: FDA-Public Use
  Company Number: US-JNJFOC-20151211271

PATIENT
  Sex: Female
  Weight: 131.54 kg

DRUGS (2)
  1. ALLOPURINOL. [Concomitant]
     Active Substance: ALLOPURINOL
     Indication: GOUT
     Route: 065
  2. INVOKANA [Suspect]
     Active Substance: CANAGLIFLOZIN
     Indication: TYPE 2 DIABETES MELLITUS
     Route: 048
     Dates: start: 20131231, end: 2014

REACTIONS (8)
  - Gout [Unknown]
  - Glycosylated haemoglobin increased [Unknown]
  - Heart rate increased [Unknown]
  - Myopia [Unknown]
  - Cardiovascular disorder [Unknown]
  - Renal failure [Unknown]
  - Blood pressure increased [Unknown]
  - Adverse event [Unknown]

NARRATIVE: CASE EVENT DATE: 2014
